FAERS Safety Report 5303163-9 (Version None)
Quarter: 2007Q2

REPORT INFORMATION
  Report Type: 
  Country: None (occurrence: None)
  Receive Date: 20070420
  Receipt Date: 20070413
  Transmission Date: 20071010
  Serious: Yes (Hospitalization)
  Sender: FDA-Public Use
  Company Number: US-GENENTECH-239942

PATIENT
  Sex: Male

DRUGS (5)
  1. AVASTIN [Suspect]
     Indication: PROSTATE CANCER
     Dosage: 1500 MG, Q3W
     Route: 042
     Dates: start: 20070227
  2. ERLOTINIB [Suspect]
     Indication: PROSTATE CANCER
     Dosage: 200 MG, QD
     Route: 048
     Dates: start: 20070227
  3. TAXOTERE [Concomitant]
     Indication: PROSTATE CANCER
  4. PREDNISONE TAB [Concomitant]
     Indication: PROSTATE CANCER
     Dosage: 5 MG, BID
     Route: 048
  5. ASPIRIN [Concomitant]
     Indication: DRUG USE FOR UNKNOWN INDICATION

REACTIONS (4)
  - ANAEMIA [None]
  - DIZZINESS [None]
  - DYSPNOEA [None]
  - FAECES DISCOLOURED [None]
